FAERS Safety Report 9225772 (Version 2)
Quarter: 2013Q2

REPORT INFORMATION
  Report Type: Report from Study
  Country: US (occurrence: US)
  Receive Date: 20130411
  Receipt Date: 20130514
  Transmission Date: 20140414
  Serious: Yes (Hospitalization)
  Sender: FDA-Public Use
  Company Number: US-ABBOTT-13P-163-1038797-00

PATIENT
  Age: 58 Year
  Sex: Female
  Weight: 79.45 kg

DRUGS (5)
  1. HUMIRA [Suspect]
     Indication: PSORIASIS
     Dosage: 40MG AND A PARTIAL INJECTION ON 12 JAN 2013
     Dates: start: 20130112
  2. HUMIRA [Suspect]
     Indication: PSORIASIS
     Dates: start: 20130112
  3. HUMIRA [Suspect]
  4. ADVIL [Concomitant]
     Indication: PAIN
  5. TYLENOL [Concomitant]
     Indication: PAIN

REACTIONS (3)
  - Cyst [Recovering/Resolving]
  - Injection site pain [Recovered/Resolved]
  - Injection site bruising [Recovered/Resolved]
